FAERS Safety Report 13826120 (Version 6)
Quarter: 2019Q1

REPORT INFORMATION
  Report Type: Report from Study
  Country: DE (occurrence: DE)
  Receive Date: 20170802
  Receipt Date: 20190104
  Transmission Date: 20190417
  Serious: Yes (Hospitalization, Other)
  Sender: FDA-Public Use
  Company Number: PHHY2017DE085205

PATIENT
  Age: 34 Year
  Sex: Female
  Weight: 60 kg

DRUGS (6)
  1. CETIRIZINE [Concomitant]
     Active Substance: CETIRIZINE HYDROCHLORIDE
     Indication: PRODUCT USED FOR UNKNOWN INDICATION
     Dosage: UNK UNK, PRN
     Route: 065
  2. IBUPROFEN. [Concomitant]
     Active Substance: IBUPROFEN
     Indication: PRODUCT USED FOR UNKNOWN INDICATION
     Dosage: 400 MG, TID (2 WEEKS BEFORE)
     Route: 065
  3. GILENYA [Suspect]
     Active Substance: FINGOLIMOD HYDROCHLORIDE
     Indication: MULTIPLE SCLEROSIS
     Dosage: 0.5 MG, QD
     Route: 048
     Dates: start: 20151230, end: 20170320
  4. MAXIM [DIENOGEST;ETHINYLESTRADIOL] [Concomitant]
     Active Substance: DIENOGEST\ETHINYL ESTRADIOL
     Indication: CONTRACEPTION
     Dosage: UNK
     Route: 065
     Dates: start: 19960101
  5. VITAMIN C [Concomitant]
     Active Substance: ASCORBIC ACID
     Indication: PRODUCT USED FOR UNKNOWN INDICATION
     Dosage: OCCASIONAL
     Route: 065
  6. MILK THISTLE PLUS [Concomitant]
     Active Substance: DIETARY SUPPLEMENT\HERBALS\MILK THISTLE
     Indication: PRODUCT USED FOR UNKNOWN INDICATION
     Dosage: 3 DF, LAST WEEK [BEFORE ADMISSION TO HOSPITAL]
     Route: 065

REACTIONS (19)
  - Acute hepatic failure [Recovering/Resolving]
  - Coagulation time shortened [Unknown]
  - White blood cell count increased [Unknown]
  - Blood alkaline phosphatase increased [Recovered/Resolved]
  - Glutamate dehydrogenase increased [Recovered/Resolved]
  - Ceruloplasmin decreased [Unknown]
  - Alanine aminotransferase increased [Recovering/Resolving]
  - Blood uric acid decreased [Unknown]
  - Hepatic enzyme increased [Recovered/Resolved]
  - Multiple sclerosis relapse [Unknown]
  - Monocyte percentage increased [Unknown]
  - Blood potassium increased [Recovered/Resolved]
  - Chromaturia [Unknown]
  - Blood lactate dehydrogenase increased [Recovered/Resolved]
  - Ocular icterus [Unknown]
  - Jaundice [Unknown]
  - Blood glucose increased [Unknown]
  - Blood bilirubin increased [Recovering/Resolving]
  - Monocyte count increased [Unknown]

NARRATIVE: CASE EVENT DATE: 20170215
